FAERS Safety Report 20691451 (Version 1)
Quarter: 2022Q2

REPORT INFORMATION
  Report Type: Spontaneous
  Country: US (occurrence: US)
  Receive Date: 20220408
  Receipt Date: 20220408
  Transmission Date: 20220720
  Serious: No
  Sender: FDA-Public Use
  Company Number: US-MYLANLABS-2022M1016180

PATIENT
  Age: 85 Year
  Sex: Female
  Weight: 76.2 kg

DRUGS (1)
  1. PROCTOFOAM HC [Suspect]
     Active Substance: HYDROCORTISONE ACETATE\PRAMOXINE HYDROCHLORIDE
     Indication: Haemorrhoids
     Dosage: UNK, QID (1/1 PERCENT, QID)
     Route: 054
     Dates: start: 20220222

REACTIONS (5)
  - Nausea [Unknown]
  - Haemorrhage [Unknown]
  - Irritability [Unknown]
  - Device leakage [Unknown]
  - Product use issue [Unknown]

NARRATIVE: CASE EVENT DATE: 20220222
